FAERS Safety Report 7244285-5 (Version None)
Quarter: 2011Q1

REPORT INFORMATION
  Report Type: 
  Country: None (occurrence: None)
  Receive Date: 20110125
  Receipt Date: 20110117
  Transmission Date: 20110831
  Serious: Yes (Hospitalization)
  Sender: FDA-Public Use
  Company Number: CA-JNJFOC-20100604893

PATIENT
  Sex: Female
  Weight: 72 kg

DRUGS (25)
  1. SUPEUDOL [Concomitant]
     Indication: PAIN
  2. PURINETHOL [Concomitant]
  3. RAN-PANTOPRAZOLE [Concomitant]
  4. DICLOFENAC [Concomitant]
  5. APO-PROPRANOLOL [Concomitant]
  6. GRAVOL TAB [Concomitant]
     Indication: NAUSEA
  7. DIMENHYDRINATE [Concomitant]
     Indication: PREMEDICATION
     Route: 042
  8. SOLU-CORTEF [Concomitant]
     Indication: PREMEDICATION
     Route: 042
  9. NOVO-ALPRAZOL [Concomitant]
     Indication: ANXIETY
  10. PLENDIL [Concomitant]
  11. RATIO-EMTEC-30 [Concomitant]
     Indication: PAIN
     Dosage: 300+30 MG
  12. VITAMIN B-12 [Concomitant]
     Route: 050
  13. RIVA-FLUCONAZOLE [Concomitant]
     Indication: VAGINAL INFECTION
  14. REMICADE [Suspect]
     Indication: CROHN'S DISEASE
     Route: 042
  15. NOVOQUININE [Concomitant]
     Indication: MUSCLE SPASMS
  16. ACETAMINOPHEN [Concomitant]
     Indication: PAIN
  17. ARTHRITIC ACETAMINOPHEN [Concomitant]
     Indication: PAIN
  18. MS CONTIN [Concomitant]
  19. RIVA-D [Concomitant]
  20. NITRAZEPAM [Concomitant]
     Indication: INSOMNIA
  21. COZAAR [Concomitant]
     Indication: BLOOD PRESSURE
  22. LYRICA [Concomitant]
  23. CALCIUM [Concomitant]
  24. APO-FUROSEMIDE [Concomitant]
     Indication: BLOOD PRESSURE
  25. RELPAX [Concomitant]
     Indication: MIGRAINE

REACTIONS (7)
  - ABDOMINAL PAIN [None]
  - PNEUMONIA [None]
  - CYSTITIS [None]
  - DRUG INEFFECTIVE [None]
  - HEADACHE [None]
  - PYREXIA [None]
  - OVERDOSE [None]
